FAERS Safety Report 12621958 (Version 8)
Quarter: 2021Q3

REPORT INFORMATION
  Report Type: Other
  Country: CA (occurrence: CA)
  Receive Date: 20160804
  Receipt Date: 20210719
  Transmission Date: 20211014
  Serious: Yes (Other)
  Sender: FDA-Public Use
  Company Number: CA-ROCHE-1457963

PATIENT
  Age: 56 Year
  Sex: Female
  Weight: 75 kg

DRUGS (15)
  1. ACTEMRA [Suspect]
     Active Substance: TOCILIZUMAB
     Route: 042
     Dates: start: 20160802, end: 20160913
  2. PREDNISONE. [Concomitant]
     Active Substance: PREDNISONE
  3. ACTEMRA [Suspect]
     Active Substance: TOCILIZUMAB
     Route: 042
     Dates: start: 20161013
  4. SALMON OIL [Concomitant]
     Active Substance: FISH OIL
  5. METHOTREXATE. [Concomitant]
     Active Substance: METHOTREXATE
  6. COVERSYL [Concomitant]
     Active Substance: PERINDOPRIL
  7. ACTEMRA [Suspect]
     Active Substance: TOCILIZUMAB
     Indication: RHEUMATOID ARTHRITIS
     Route: 042
     Dates: start: 20140605, end: 20140605
  8. ACTEMRA [Suspect]
     Active Substance: TOCILIZUMAB
     Dosage: 8MG/KG
     Route: 042
     Dates: start: 20140624, end: 20160418
  9. ACTEMRA [Suspect]
     Active Substance: TOCILIZUMAB
     Route: 042
     Dates: start: 20160705, end: 20160705
  10. ARAVA [Concomitant]
     Active Substance: LEFLUNOMIDE
  11. ACTEMRA [Suspect]
     Active Substance: TOCILIZUMAB
     Route: 042
     Dates: start: 20160614, end: 20160614
  12. ACTEMRA [Suspect]
     Active Substance: TOCILIZUMAB
     Route: 042
  13. FOLIC ACID. [Concomitant]
     Active Substance: FOLIC ACID
  14. IBUPROFEN. [Concomitant]
     Active Substance: IBUPROFEN
  15. TYLENOL ARTHRITIS PAIN [Concomitant]
     Active Substance: ACETAMINOPHEN

REACTIONS (20)
  - Hypotension [Recovered/Resolved]
  - Retinal detachment [Unknown]
  - Pain [Unknown]
  - Oxygen saturation decreased [Unknown]
  - Cough [Not Recovered/Not Resolved]
  - Weight increased [Not Recovered/Not Resolved]
  - Incorrect dose administered [Unknown]
  - Dysgeusia [Recovered/Resolved]
  - Headache [Unknown]
  - Dry mouth [Recovered/Resolved]
  - Infusion related reaction [Unknown]
  - Blood pressure increased [Unknown]
  - Heart rate increased [Unknown]
  - Influenza like illness [Unknown]
  - Nausea [Recovering/Resolving]
  - Weight decreased [Recovered/Resolved]
  - Arthralgia [Not Recovered/Not Resolved]
  - Rhinorrhoea [Not Recovered/Not Resolved]
  - Pyrexia [Unknown]
  - Blood pressure increased [Unknown]

NARRATIVE: CASE EVENT DATE: 20140902
